FAERS Safety Report 6312302-2 (Version None)
Quarter: 2009Q3

REPORT INFORMATION
  Report Type: 
  Country: None (occurrence: None)
  Receive Date: 20090817
  Receipt Date: 20090803
  Transmission Date: 20100115
  Serious: Yes (Other)
  Sender: FDA-Public Use
  Company Number: GB-MYLANLABS-2009S1013756

PATIENT
  Age: 41 Year
  Sex: Female

DRUGS (2)
  1. DOXYCYCLINE [Suspect]
     Indication: MALARIA PROPHYLAXIS
     Route: 048
     Dates: start: 20090501
  2. ZOPICLONE [Concomitant]
     Indication: POOR QUALITY SLEEP
     Route: 048
     Dates: start: 20090615

REACTIONS (3)
  - DEPRESSION [None]
  - PANIC ATTACK [None]
  - VOMITING [None]
